FAERS Safety Report 13094185 (Version 1)
Quarter: 2017Q1

REPORT INFORMATION
  Report Type: Spontaneous
  Country: FR (occurrence: FR)
  Receive Date: 20170106
  Receipt Date: 20170106
  Transmission Date: 20170428
  Serious: Yes (Other)
  Sender: FDA-Public Use
  Company Number: FR-SA-2016SA237039

PATIENT
  Age: 17 Year
  Sex: Male
  Weight: 76 kg

DRUGS (4)
  1. RANITIDINE HYDROCHLORIDE. [Suspect]
     Active Substance: RANITIDINE HYDROCHLORIDE
     Route: 048
     Dates: start: 20160830, end: 201610
  2. DOLIPRANE [Concomitant]
     Active Substance: ACETAMINOPHEN
     Indication: SYNOVECTOMY
     Route: 048
  3. LEVOFLOXACIN. [Suspect]
     Active Substance: LEVOFLOXACIN
     Indication: SYNOVECTOMY
     Route: 048
     Dates: start: 20160830, end: 201610
  4. RIFADINE [Suspect]
     Active Substance: RIFAMPIN
     Indication: SYNOVECTOMY
     Route: 048
     Dates: start: 201608, end: 20160830

REACTIONS (3)
  - Neutropenia [Unknown]
  - Drug dose omission [Unknown]
  - Medication error [Unknown]

NARRATIVE: CASE EVENT DATE: 20160830
